FAERS Safety Report 18861929 (Version 3)
Quarter: 2021Q2

REPORT INFORMATION
  Report Type: Spontaneous
  Country: DE (occurrence: DE)
  Receive Date: 20210208
  Receipt Date: 20210623
  Transmission Date: 20210717
  Serious: Yes (Disabling, Other)
  Sender: FDA-Public Use
  Company Number: NVSC2021DE024658

PATIENT
  Sex: Female
  Weight: 59 kg

DRUGS (7)
  1. HUMIRA [Suspect]
     Active Substance: ADALIMUMAB
     Dosage: 40MG
     Route: 058
     Dates: start: 2020, end: 2020
  2. RAMIPRIL. [Concomitant]
     Active Substance: RAMIPRIL
     Indication: HYPERTENSION
     Dosage: UNK
     Route: 065
  3. HUMIRA [Suspect]
     Active Substance: ADALIMUMAB
     Indication: RHEUMATOID ARTHRITIS
     Dosage: 40MG
     Route: 058
     Dates: start: 20161018, end: 202001
  4. HUMIRA [Suspect]
     Active Substance: ADALIMUMAB
     Indication: POLYARTHRITIS
     Dosage: 40 MG,14
     Route: 058
     Dates: start: 20161018, end: 201910
  5. METEX [Concomitant]
     Indication: POLYARTHRITIS
     Dosage: 10 MG, QW
     Route: 058
     Dates: start: 201111
  6. METHOTREXATE. [Suspect]
     Active Substance: METHOTREXATE
     Indication: PRODUCT USED FOR UNKNOWN INDICATION
     Dosage: UNK
     Route: 065
  7. EUTHYROX [Concomitant]
     Active Substance: LEVOTHYROXINE SODIUM
     Indication: THYROID DISORDER
     Dosage: UNK
     Route: 065

REACTIONS (8)
  - Rash macular [Recovering/Resolving]
  - Weight increased [Not Recovered/Not Resolved]
  - Mobility decreased [Unknown]
  - Impaired healing [Recovered/Resolved]
  - Stress fracture [Recovered/Resolved]
  - Stress fracture [Recovered/Resolved]
  - Foot fracture [Recovered/Resolved]
  - Drug ineffective [Not Recovered/Not Resolved]

NARRATIVE: CASE EVENT DATE: 201811
